FAERS Safety Report 4978239-6 (Version None)
Quarter: 2006Q2

REPORT INFORMATION
  Report Type: 
  Country: None (occurrence: None)
  Receive Date: 20060417
  Receipt Date: 20060406
  Transmission Date: 20061013
  Serious: Yes (Hospitalization)
  Sender: FDA-Public Use
  Company Number: 232182K06USA

PATIENT
  Age: 58 Year
  Sex: Female
  Weight: 97.5234 kg

DRUGS (8)
  1. REBIF [Suspect]
     Indication: MULTIPLE SCLEROSIS
     Dosage: 44 MCG, 3 IN 1 WEEKS, SUBCUTANEOUS
     Route: 058
     Dates: start: 20040116
  2. NOVANTRONE [Suspect]
     Indication: MULTIPLE SCLEROSIS
     Dosage: INTRAVENOUS
     Route: 042
     Dates: start: 20050701
  3. DIOVAN [Concomitant]
  4. HYDROCHLOROTHIAZIDE (HYDROCHLOROTHIAZIDE0 [Concomitant]
  5. NORVASC [Concomitant]
  6. CORGARD [Concomitant]
  7. K-DUR 10 [Concomitant]
  8. ASPIRIN [Concomitant]

REACTIONS (4)
  - DYSSTASIA [None]
  - FALL [None]
  - GENERAL PHYSICAL HEALTH DETERIORATION [None]
  - JOINT INJURY [None]
